FAERS Safety Report 14138827 (Version 1)
Quarter: 2017Q4

REPORT INFORMATION
  Report Type: Spontaneous
  Country: BR (occurrence: BR)
  Receive Date: 20171027
  Receipt Date: 20171027
  Transmission Date: 20180321
  Serious: Yes (Other)
  Sender: FDA-Public Use
  Company Number: PHHY2017BR156475

PATIENT
  Sex: Female
  Weight: 75 kg

DRUGS (1)
  1. HYDERGINE [Suspect]
     Active Substance: ERGOLOID MESYLATES
     Indication: CEREBRAL ISCHAEMIA
     Dosage: 2 DF, QD
     Route: 048

REACTIONS (3)
  - Head discomfort [Unknown]
  - Myalgia [Unknown]
  - Metastases to bone marrow [Unknown]
